FAERS Safety Report 6932263-2 (Version None)
Quarter: 2010Q3

REPORT INFORMATION
  Report Type: 
  Country: None (occurrence: None)
  Receive Date: 20100819
  Receipt Date: 20100810
  Transmission Date: 20110219
  Serious: Yes (Hospitalization)
  Sender: FDA-Public Use
  Company Number: BR-ASTRAZENECA-2010SE31311

PATIENT
  Age: 79 Year
  Sex: Female
  Weight: 57 kg

DRUGS (1)
  1. ATACAND [Suspect]
     Indication: HYPERTENSION
     Route: 048
     Dates: start: 20000101

REACTIONS (5)
  - CONSTIPATION [None]
  - DYSPLASIA [None]
  - GASTROINTESTINAL TRACT ADENOMA [None]
  - INTESTINAL POLYP [None]
  - MEDICATION ERROR [None]
